FAERS Safety Report 6997789-4 (Version None)
Quarter: 2010Q3

REPORT INFORMATION
  Report Type: 
  Country: None (occurrence: None)
  Receive Date: 20100920
  Receipt Date: 20100909
  Transmission Date: 20110219
  Serious: Yes (Hospitalization)
  Sender: FDA-Public Use
  Company Number: US-BIOGENIDEC-2010BI031611

PATIENT
  Age: 54 Year
  Sex: Female
  Weight: 160 kg

DRUGS (8)
  1. TYSABRI [Suspect]
     Indication: MULTIPLE SCLEROSIS
     Route: 042
     Dates: start: 20091102
  2. CLONIDINE [Concomitant]
     Indication: HYPERTENSION
  3. LISINOPRIL [Concomitant]
     Indication: HYPERTENSION
  4. ZOLOFT [Concomitant]
     Indication: MULTIPLE SCLEROSIS
  5. GABAPENTIN [Concomitant]
     Indication: MULTIPLE SCLEROSIS
  6. TIZANIDINE HCL [Concomitant]
     Indication: MULTIPLE SCLEROSIS
  7. LANTUS [Concomitant]
     Indication: DIABETES MELLITUS
  8. BYETTA [Concomitant]
     Indication: DIABETES MELLITUS

REACTIONS (6)
  - ANAEMIA [None]
  - DECREASED APPETITE [None]
  - DRY EYE [None]
  - FALL [None]
  - MULTIPLE SCLEROSIS [None]
  - MULTIPLE SCLEROSIS RELAPSE [None]
